FAERS Safety Report 23507089 (Version 1)
Quarter: 2024Q1

REPORT INFORMATION
  Report Type: Report from Study
  Country: US (occurrence: US)
  Receive Date: 20240209
  Receipt Date: 20240209
  Transmission Date: 20240410
  Serious: Yes (Life-Threatening)
  Sender: FDA-Public Use
  Company Number: US-AMX-007342

PATIENT
  Age: 60 Year
  Sex: Female

DRUGS (1)
  1. RELYVRIO [Suspect]
     Active Substance: SODIUM PHENYLBUTYRATE\TAURURSODIOL
     Indication: Amyotrophic lateral sclerosis
     Dosage: 1 SACHET ONCE DAILY FOR FIRST 3 WEEKS THEN ONE SACHET TWICE DAILY
     Route: 048
     Dates: start: 20240201

REACTIONS (7)
  - Hypersensitivity [Recovered/Resolved]
  - Swelling [Unknown]
  - Paraesthesia oral [Unknown]
  - Throat lesion [Unknown]
  - Rash [Unknown]
  - Throat tightness [Unknown]
  - Tongue eruption [Unknown]

NARRATIVE: CASE EVENT DATE: 20240201
